FAERS Safety Report 6699196-0 (Version None)
Quarter: 2010Q2

REPORT INFORMATION
  Report Type: 
  Country: None (occurrence: None)
  Receive Date: 20100427
  Receipt Date: 20100413
  Transmission Date: 20101027
  Serious: Yes (Other)
  Sender: FDA-Public Use
  Company Number: FR-ELI_LILLY_AND_COMPANY-FR201003004802

PATIENT
  Age: 84 Year
  Sex: Female
  Weight: 57 kg

DRUGS (7)
  1. FORTEO [Suspect]
     Indication: OSTEOPOROSIS
     Dosage: 20 UG, DAILY (1/D)
     Route: 058
     Dates: start: 20090131
  2. LEVOTHYROX [Concomitant]
     Dosage: UNK, UNKNOWN
     Route: 048
  3. CORDARONE [Concomitant]
     Dosage: UNK, UNKNOWN
     Route: 048
  4. CRESTOR [Concomitant]
     Dosage: UNK, UNKNOWN
     Route: 048
  5. LYSANXIA [Concomitant]
     Dosage: UNK, UNKNOWN
     Route: 048
  6. PREVISCAN [Concomitant]
     Dosage: UNK, UNKNOWN
     Route: 048
  7. IRBESARTAN [Concomitant]
     Dosage: UNK, UNKNOWN
     Route: 048

REACTIONS (3)
  - ATRIAL TACHYCARDIA [None]
  - CARDIAC FAILURE [None]
  - PULMONARY OEDEMA [None]
